FAERS Safety Report 21847676 (Version 2)
Quarter: 2023Q1

REPORT INFORMATION
  Report Type: Report from Study
  Country: US (occurrence: US)
  Receive Date: 20230111
  Receipt Date: 20230302
  Transmission Date: 20230417
  Serious: No
  Sender: FDA-Public Use
  Company Number: US-BIOVITRUM-2022US14123

PATIENT
  Age: 91 Year
  Sex: Female

DRUGS (2)
  1. DOPTELET [Suspect]
     Active Substance: AVATROMBOPAG MALEATE
     Indication: Product used for unknown indication
  2. DOPTELET [Suspect]
     Active Substance: AVATROMBOPAG MALEATE

REACTIONS (1)
  - Drug ineffective [Unknown]
